FAERS Safety Report 25923488 (Version 1)
Quarter: 2025Q4

REPORT INFORMATION
  Report Type: Spontaneous
  Country: US (occurrence: US)
  Receive Date: 20251015
  Receipt Date: 20251015
  Transmission Date: 20260117
  Serious: Yes (Hospitalization)
  Sender: BIOVITRUM
  Company Number: US-BIOVITRUM-2025-US-013902

PATIENT
  Age: 77 Year
  Sex: Female

DRUGS (1)
  1. VONJO [Suspect]
     Active Substance: PACRITINIB
     Indication: Myelofibrosis
     Dosage: TAKE 2 CAPSULES TWICE DAILY
     Route: 048
     Dates: start: 20231201

REACTIONS (5)
  - Pelvic pain [Unknown]
  - Splenomegaly [Unknown]
  - Loss of personal independence in daily activities [Unknown]
  - Fear of travelling [Unknown]
  - Frustration tolerance decreased [Unknown]
